FAERS Safety Report 16375517 (Version 1)
Quarter: 2019Q2

REPORT INFORMATION
  Report Type: Spontaneous
  Country: HU (occurrence: HU)
  Receive Date: 20190531
  Receipt Date: 20190531
  Transmission Date: 20190711
  Serious: Yes (Other)
  Sender: FDA-Public Use
  Company Number: HU-ABBVIE-19K-076-2800357-00

PATIENT
  Sex: Male

DRUGS (1)
  1. VENCLYXTO [Suspect]
     Active Substance: VENETOCLAX
     Indication: HIGH GRADE B-CELL LYMPHOMA BURKITT-LIKE LYMPHOMA
     Route: 048

REACTIONS (2)
  - Systemic candida [Unknown]
  - Off label use [Unknown]
